FAERS Safety Report 25138179 (Version 1)
Quarter: 2025Q1

REPORT INFORMATION
  Report Type: Other
  Country: SG (occurrence: SG)
  Receive Date: 20250330
  Receipt Date: 20250330
  Transmission Date: 20250409
  Serious: Yes (Hospitalization, Other)
  Sender: SPECTRA MEDICAL DEVICES, LLC
  Company Number: SG-Spectra Medical Devices, LLC-2173883

PATIENT
  Age: 87 Year
  Sex: Male

DRUGS (2)
  1. LIDOCAINE HYDROCHLORIDE [Suspect]
     Active Substance: LIDOCAINE HYDROCHLORIDE
     Indication: Local anaesthesia
  2. MIDAZOLAM [Concomitant]
     Active Substance: MIDAZOLAM

REACTIONS (2)
  - Quadriplegia [Recovered/Resolved]
  - Accidental high spinal anaesthesia [Recovered/Resolved]
